FAERS Safety Report 12672686 (Version 2)
Quarter: 2016Q4

REPORT INFORMATION
  Report Type: Spontaneous
  Country: US (occurrence: US)
  Receive Date: 20160822
  Receipt Date: 20161004
  Transmission Date: 20170207
  Serious: No
  Sender: FDA-Public Use
  Company Number: US-JNJFOC-20160711916

PATIENT
  Age: 46 Year
  Sex: Female
  Weight: 104.33 kg

DRUGS (6)
  1. WOMENS ROGAINE UNSCENTED [Suspect]
     Active Substance: MINOXIDIL
     Indication: ANDROGENETIC ALOPECIA
     Dosage: 1/2 CAP FULL
     Route: 061
     Dates: start: 20160324, end: 20160713
  2. SKIN HAIR NAILS [Concomitant]
     Indication: NAIL DISORDER
     Dosage: 1 EVERY OTHER DAY
     Route: 065
  3. WOMENS ROGAINE UNSCENTED [Suspect]
     Active Substance: MINOXIDIL
     Route: 061
  4. SKIN HAIR NAILS [Concomitant]
     Indication: HAIR DISORDER
     Dosage: 1 EVERY OTHER DAY
     Route: 065
  5. SKIN HAIR NAILS [Concomitant]
     Indication: SKIN DISORDER
     Dosage: 1 EVERY OTHER DAY
     Route: 065
  6. MULTIVITAMIN [Concomitant]
     Active Substance: VITAMINS
     Indication: ROUTINE HEALTH MAINTENANCE
     Dosage: 1 5XS WEEK, 3 WEEKS
     Route: 065

REACTIONS (7)
  - Drug administration error [Not Recovered/Not Resolved]
  - Insomnia [Not Recovered/Not Resolved]
  - Pruritus [Not Recovered/Not Resolved]
  - Sexual dysfunction [Not Recovered/Not Resolved]
  - Dark circles under eyes [Not Recovered/Not Resolved]
  - Drug effect incomplete [Unknown]
  - Libido decreased [Not Recovered/Not Resolved]

NARRATIVE: CASE EVENT DATE: 2016
